FAERS Safety Report 4599339-9 (Version None)
Quarter: 2005Q1

REPORT INFORMATION
  Report Type: 
  Country: None (occurrence: None)
  Receive Date: 20050302
  Receipt Date: 20050217
  Transmission Date: 20050727
  Serious: Yes (Other)
  Sender: FDA-Public Use
  Company Number: HQWYE018102FEB05

PATIENT
  Age: 57 Year
  Sex: Male

DRUGS (8)
  1. CORDARONE [Suspect]
     Indication: ATRIAL FIBRILLATION
     Dosage: 50 MG 1X PER 1 DAY INTRAVENOUS DRIP
     Route: 041
     Dates: start: 20041210, end: 20041221
  2. CORDARONE [Suspect]
     Indication: ATRIAL FLUTTER
     Dosage: 50 MG 1X PER 1 DAY INTRAVENOUS DRIP
     Route: 041
     Dates: start: 20041210, end: 20041221
  3. PROPOFOL [Suspect]
     Dosage: INTRAVENOUS DRIP
     Route: 041
     Dates: start: 20041206, end: 20041217
  4. ATORVASTATIN CALCIUM [Suspect]
     Indication: HYPERLIPIDAEMIA
     Dosage: 40 MG 1X PER 1 DAY ORAL
     Route: 048
     Dates: end: 20041220
  5. FENTANYL (FENTANYL) [Concomitant]
  6. ROCEPHIN [Concomitant]
  7. SOLU-CORTEF [Concomitant]
  8. FLOXAPEN (FLUCLOXACILLIN SODIUM) [Concomitant]

REACTIONS (2)
  - RENAL FAILURE ACUTE [None]
  - RHABDOMYOLYSIS [None]
